FAERS Safety Report 16438983 (Version 2)
Quarter: 2022Q3

REPORT INFORMATION
  Report Type: Other
  Country: BW (occurrence: BW)
  Receive Date: 20190617
  Receipt Date: 20220829
  Transmission Date: 20221027
  Serious: Yes (Death, Congenital Anomaly, Other)
  Sender: FDA-Public Use
  Company Number: US-MACLEODS PHARMACEUTICALS US LTD-MAC2019021637

PATIENT

DRUGS (4)
  1. LAMIVUDINE [Suspect]
     Active Substance: LAMIVUDINE
     Indication: Product used for unknown indication
     Dosage: UNK (1 COURSE, NOT PRIOR TO CONCEPTION, THIRD TRIMESTER OF EXPOSURE)
     Route: 064
     Dates: start: 20181008
  2. TENOFOVIR [Suspect]
     Active Substance: TENOFOVIR
     Indication: Product used for unknown indication
     Dosage: UNK (1 COURSE, PRIOR TO CONCEPTIN, FIRST TRIMESTER OF EXPOSURE)
     Route: 064
     Dates: start: 20170322
  3. EMTRIVA [Suspect]
     Active Substance: EMTRICITABINE
     Indication: Product used for unknown indication
     Dosage: UNK (1 COURSE DURING FIRST TRIMESTER, PRIOR TO CONCEPTION)
     Route: 064
     Dates: start: 20170322
  4. TIVICAY [Suspect]
     Active Substance: DOLUTEGRAVIR SODIUM
     Indication: Product used for unknown indication
     Dosage: UNK(1 COURSE DURING FIRST TRIMESTER, PRIOR TO CONCEPTION)
     Route: 064
     Dates: start: 20170322

REACTIONS (3)
  - Meningocele [Fatal]
  - Spina bifida [Fatal]
  - Foetal exposure during pregnancy [Fatal]
